FAERS Safety Report 7967972-X (Version None)
Quarter: 2011Q4

REPORT INFORMATION
  Report Type: 
  Country: None (occurrence: None)
  Receive Date: 20111122
  Receipt Date: 20110816
  Transmission Date: 20120403
  Serious: No
  Sender: FDA-Public Use
  Company Number: PHHY2011US56280

PATIENT
  Age: 52 Year
  Sex: Female

DRUGS (11)
  1. ZOLOFT [Concomitant]
  2. CITRACAL + D (CALCIUM CITRATE, ERGOCALCIFEROL) [Concomitant]
  3. ATENOLOL [Concomitant]
  4. XANAX [Concomitant]
  5. GILENYA [Suspect]
     Indication: RELAPSING-REMITTING MULTIPLE SCLEROSIS
     Dosage: 0.5 MG, QD, ORAL
     Route: 048
     Dates: start: 20110325
  6. FAMPRIDINE (FAMPRIDINE) [Concomitant]
  7. LIORESAL [Concomitant]
  8. MAGNESIUM (MAGNESIUM) [Concomitant]
  9. BACLOFEN [Concomitant]
  10. TENORMIN [Concomitant]
  11. VITAMIN D [Concomitant]

REACTIONS (10)
  - ABDOMINAL PAIN [None]
  - NASAL CONGESTION [None]
  - NAUSEA [None]
  - HEADACHE [None]
  - HOT FLUSH [None]
  - HEART RATE DECREASED [None]
  - MUSCULOSKELETAL STIFFNESS [None]
  - FATIGUE [None]
  - MOBILITY DECREASED [None]
  - GAIT DISTURBANCE [None]
